FAERS Safety Report 5269263-7 (Version None)
Quarter: 2007Q1

REPORT INFORMATION
  Report Type: 
  Country: None (occurrence: None)
  Receive Date: 20070319
  Receipt Date: 20070312
  Transmission Date: 20070707
  Serious: Yes (Other)
  Sender: FDA-Public Use
  Company Number: US-PFIZER INC-2007018950

PATIENT
  Sex: Male
  Weight: 88.5 kg

DRUGS (2)
  1. VIAGRA [Suspect]
     Indication: ERECTILE DYSFUNCTION
  2. INSULIN [Concomitant]

REACTIONS (3)
  - ACCIDENT [None]
  - DRUG INEFFECTIVE [None]
  - LOWER LIMB FRACTURE [None]
